FAERS Safety Report 6318459-1 (Version None)
Quarter: 2009Q3

REPORT INFORMATION
  Report Type: 
  Country: None (occurrence: None)
  Receive Date: 20090821
  Receipt Date: 20090810
  Transmission Date: 20100115
  Serious: Yes (Hospitalization, Disabling, Other)
  Sender: FDA-Public Use
  Company Number: CA-ELI_LILLY_AND_COMPANY-CA200905002839

PATIENT
  Sex: Female
  Weight: 52.154 kg

DRUGS (10)
  1. CYMBALTA [Suspect]
     Indication: PAIN
     Dosage: 60 MG, UNK
     Dates: start: 20090405, end: 20090415
  2. NAPROSYN [Concomitant]
     Dosage: 250 MG, 2/D
  3. PARIET [Concomitant]
     Dosage: 20 MG, DAILY (1/D)
     Route: 048
  4. SYNTHROID [Concomitant]
     Dosage: 0.75 MG, DAILY (1/D)
     Route: 048
  5. LIPITOR [Concomitant]
     Dosage: 10 MG, DAILY (1/D)
     Route: 048
  6. ATIVAN [Concomitant]
     Dosage: 1 MG, AS NEEDED
  7. ACTONEL [Concomitant]
     Dosage: 35 MG, WEEKLY (1/W)
  8. LACTULOSE [Concomitant]
     Dosage: UNK, AS NEEDED
  9. TYLENOL                                 /SCH/ [Concomitant]
     Dosage: UNK, AS NEEDED
  10. MULTI-VITAMIN [Concomitant]

REACTIONS (5)
  - ANXIETY [None]
  - BLOOD PRESSURE INCREASED [None]
  - DEMENTIA [None]
  - HAEMORRHAGIC STROKE [None]
  - URINARY TRACT INFECTION [None]
